FAERS Safety Report 11178255 (Version 2)
Quarter: 2015Q3

REPORT INFORMATION
  Report Type: Spontaneous
  Country: US (occurrence: US)
  Receive Date: 20150610
  Receipt Date: 20150727
  Transmission Date: 20151125
  Serious: Yes (Other)
  Sender: FDA-Public Use
  Company Number: US-PFIZER INC-2015186533

PATIENT
  Age: 72 Year
  Sex: Female
  Weight: 175 kg

DRUGS (29)
  1. EC-NAPROSYN [Concomitant]
     Active Substance: NAPROXEN
     Dosage: 500 MG, 2X/DAY IN THE MORNING
  2. FLAX OIL [Concomitant]
     Dosage: UNK, 1X/DAY
     Dates: end: 2015
  3. CINNAMON. [Concomitant]
     Active Substance: CINNAMON
  4. DIPHENHYDRAMINE HCL [Concomitant]
     Active Substance: DIPHENHYDRAMINE HYDROCHLORIDE
     Dosage: 10 MG, AS NEEDED
     Dates: end: 2015
  5. HUMALOG [Concomitant]
     Active Substance: INSULIN LISPRO
     Dosage: 25 MG, 3X/DAY
  6. DIPHENHYDRAMINE HCL [Concomitant]
     Active Substance: DIPHENHYDRAMINE HYDROCHLORIDE
     Dosage: 25 MG, 1X/DAY BED TIME
  7. LISINOPRIL. [Concomitant]
     Active Substance: LISINOPRIL
     Dosage: 20 MG, 2X/DAY
  8. TRAMADOL HCL [Concomitant]
     Active Substance: TRAMADOL HYDROCHLORIDE
     Indication: PAIN
     Dosage: 50 MG, 3X/DAY
  9. XANAX [Concomitant]
     Active Substance: ALPRAZOLAM
     Indication: ANXIETY
     Dosage: 0.5 MG, 2X/DAY
  10. ALPHA LIPOIC ACID [Concomitant]
     Active Substance: .ALPHA.-LIPOIC ACID
     Dosage: 600 MG, 1 TWICE A DAY
     Dates: end: 2013
  11. LANTUS [Concomitant]
     Active Substance: INSULIN GLARGINE
     Dosage: 50 MG, 2X/DAY
  12. LYRICA [Suspect]
     Active Substance: PREGABALIN
     Indication: FIBROMYALGIA
     Dosage: 100 MG, 3X/DAY
  13. LYRICA [Suspect]
     Active Substance: PREGABALIN
     Indication: NEURALGIA
     Dosage: 150 MG, 3X/DAY
     Dates: start: 201502
  14. CLARITIN [Concomitant]
     Active Substance: LORATADINE
     Dosage: UNK, AS NEEDED
     Dates: start: 1998
  15. EXCEDRIN MIGRAINE [Concomitant]
     Active Substance: ACETAMINOPHEN\ASPIRIN\CAFFEINE
     Dosage: [ACETYLSALICYLIC ACID 250MG, CAFFEINE 250MG, PARACETAMOL 65MG] TAKEN 1-2 AT NIGHT
  16. LEVOTHROID [Concomitant]
     Active Substance: LEVOTHYROXINE SODIUM
     Dosage: 100 ?G, 1X/DAY
  17. XANAX [Concomitant]
     Active Substance: ALPRAZOLAM
     Dosage: 1 MG, 1X/DAY
  18. LYRICA [Suspect]
     Active Substance: PREGABALIN
     Indication: NEUROPATHY PERIPHERAL
     Dosage: 150 MG, 3X/DAY
     Dates: start: 2015
  19. ASPIR-81 [Concomitant]
     Active Substance: ASPIRIN
     Dosage: 81 MG, 1X/DAY
  20. CHROMIUM PICOLINATE [Concomitant]
     Active Substance: CHROMIUM PICOLINATE
     Dosage: 200 ?G, 1X/DAY
     Dates: end: 2013
  21. VITAMIN D3 [Concomitant]
     Active Substance: CHOLECALCIFEROL
     Dosage: 1000 IU, 1X/DAY
     Dates: end: 2013
  22. CLARITIN [Concomitant]
     Active Substance: LORATADINE
     Dosage: 10 MG, 1X/DAY
  23. CYCLOBENZAPRINE HCL [Concomitant]
     Active Substance: CYCLOBENZAPRINE HYDROCHLORIDE
     Indication: MUSCLE SPASMS
     Dosage: 10 MG, 1/2 OR 1 TID PRN
  24. EPIPEN [Concomitant]
     Active Substance: EPINEPHRINE
     Dosage: 0.3 MG/0.3ML DEVI AS DIRECTED
     Dates: end: 2015
  25. HUMALOG [Concomitant]
     Active Substance: INSULIN LISPRO
     Dosage: 25 UNITS, AS NEEDED, THREE TIMES DAILY,WITH MEALS
  26. LANTUS [Concomitant]
     Active Substance: INSULIN GLARGINE
     Dosage: 65 IU,AS NEEDED, TWICE DAILY
     Route: 058
  27. LISINOPRIL. [Concomitant]
     Active Substance: LISINOPRIL
     Dosage: 40 MG, 1X/DAY
  28. BENZONATATE. [Concomitant]
     Active Substance: BENZONATATE
     Dosage: 100MG 1-2 Q12 AS NEEDED (AS DIRECTED)
  29. CALCIUM [Concomitant]
     Active Substance: CALCIUM
     Dosage: 500 MG, DAILY
     Dates: end: 2015

REACTIONS (7)
  - Blood pressure decreased [Unknown]
  - Intervertebral disc compression [Not Recovered/Not Resolved]
  - Gait disturbance [Unknown]
  - Body height decreased [Not Recovered/Not Resolved]
  - Glycosylated haemoglobin increased [Unknown]
  - Burning sensation [Unknown]
  - Dyspnoea [Unknown]

NARRATIVE: CASE EVENT DATE: 2010
